FAERS Safety Report 24569279 (Version 1)
Quarter: 2024Q4

REPORT INFORMATION
  Report Type: Report from Study
  Country: US (occurrence: US)
  Receive Date: 20241031
  Receipt Date: 20241031
  Transmission Date: 20250114
  Serious: Yes (Other)
  Sender: BAYER HEALTHCARE LLC
  Company Number: US-BAYER-2024A153219

PATIENT
  Sex: Female

DRUGS (2)
  1. ASPIRIN [Suspect]
     Active Substance: ASPIRIN
     Indication: Product used for unknown indication
  2. IBUPROFEN [Suspect]
     Active Substance: IBUPROFEN

REACTIONS (1)
  - Angioedema [None]
